FAERS Safety Report 7958369-7 (Version None)
Quarter: 2011Q4

REPORT INFORMATION
  Report Type: 
  Country: None (occurrence: None)
  Receive Date: 20111205
  Receipt Date: 20111202
  Transmission Date: 20120403
  Serious: No
  Sender: FDA-Public Use
  Company Number: US-PFIZER INC-2011295145

PATIENT
  Age: 29 Year
  Sex: Female

DRUGS (3)
  1. CHANTIX [Suspect]
     Indication: SMOKING CESSATION THERAPY
     Dosage: UNK
     Route: 048
     Dates: start: 20100101
  2. FLEXERIL [Concomitant]
     Dosage: UNK
  3. ROBAXIN [Concomitant]
     Dosage: UNK

REACTIONS (2)
  - TOOTHACHE [None]
  - GINGIVAL DISCOLOURATION [None]
